FAERS Safety Report 7864854-9 (Version None)
Quarter: 2011Q4

REPORT INFORMATION
  Report Type: 
  Country: None (occurrence: None)
  Receive Date: 20111028
  Receipt Date: 20100903
  Transmission Date: 20120403
  Serious: No
  Sender: FDA-Public Use
  Company Number: US-GLAXOSMITHKLINE-A0879577A

PATIENT
  Age: 59 Year
  Sex: Female

DRUGS (4)
  1. ANTI-CHOLESTEROL MEDICATION [Concomitant]
  2. FLEXERIL [Concomitant]
  3. ANTI-HYPERTENSIVE [Concomitant]
  4. ADVAIR DISKUS 100/50 [Suspect]
     Indication: DYSPNOEA
     Dosage: 1PUFF PER DAY
     Route: 055
     Dates: start: 20100827, end: 20100827

REACTIONS (5)
  - DIZZINESS [None]
  - ILL-DEFINED DISORDER [None]
  - NAUSEA [None]
  - CHILLS [None]
  - VERTIGO [None]
